FAERS Safety Report 11224697 (Version 1)
Quarter: 2015Q2

REPORT INFORMATION
  Report Type: Spontaneous
  Country: BR (occurrence: BR)
  Receive Date: 20150629
  Receipt Date: 20150629
  Transmission Date: 20150821
  Serious: Yes (Other)
  Sender: FDA-Public Use
  Company Number: BR-PFIZER INC-2015212829

PATIENT
  Age: 85 Year
  Sex: Male
  Weight: 56 kg

DRUGS (8)
  1. PANTOPRAZOLE [Suspect]
     Active Substance: PANTOPRAZOLE SODIUM
     Indication: HIATUS HERNIA
     Dosage: 40 MG, DAILY
     Route: 065
  2. EXELON [Suspect]
     Active Substance: RIVASTIGMINE TARTRATE
     Dosage: 18 MG, DAILY
     Route: 065
  3. PANTOPRAZOLE [Suspect]
     Active Substance: PANTOPRAZOLE SODIUM
     Indication: GASTRITIS
     Dosage: 20 MG, DAILY
     Route: 065
  4. LIPITOR [Suspect]
     Active Substance: ATORVASTATIN CALCIUM
     Indication: BLOOD CHOLESTEROL INCREASED
     Dosage: 10 MG, DAILY
     Route: 065
  5. EXELON [Suspect]
     Active Substance: RIVASTIGMINE TARTRATE
     Dosage: 9 MG, DAILY
     Route: 065
  6. EXELON [Suspect]
     Active Substance: RIVASTIGMINE TARTRATE
     Indication: MEMORY IMPAIRMENT
     Dosage: 9 MG, DAILY
     Route: 062
  7. EXELON [Suspect]
     Active Substance: RIVASTIGMINE TARTRATE
     Dosage: 27 MG, DAILY
     Route: 065
  8. SOMALGIN [Suspect]
     Active Substance: ASPIRIN\DIHYDROXYALUMINUM AMINOACETATE ANHYDROUS\MAGNESIUM CARBONATE
     Indication: ARRHYTHMIA
     Dosage: 1 DF, DAILY, (BEFORE LUNCH)
     Route: 065

REACTIONS (3)
  - Application site erythema [Unknown]
  - Mental impairment [Recovering/Resolving]
  - Vomiting [Recovered/Resolved]
